FAERS Safety Report 10541572 (Version 1)
Quarter: 2014Q4

REPORT INFORMATION
  Report Type: Spontaneous
  Country: US (occurrence: US)
  Receive Date: 20141024
  Receipt Date: 20141024
  Transmission Date: 20150529
  Serious: No
  Sender: FDA-Public Use
  Company Number: US-ALLERGAN-1316054US

PATIENT
  Age: 83 Year
  Sex: Female
  Weight: 56.69 kg

DRUGS (5)
  1. TIMOLOL SANDOZ [Suspect]
     Active Substance: TIMOLOL
     Indication: GLAUCOMA
     Dosage: UNK, TWICE A DAY
     Dates: start: 201309, end: 20131001
  2. XALATAN [Suspect]
     Active Substance: LATANOPROST
     Indication: GLAUCOMA
     Dosage: UNK, IN THE EVENING
     Dates: end: 20131001
  3. TIMOLOL FALCON [Concomitant]
     Active Substance: TIMOLOL
     Indication: GLAUCOMA
     Dosage: UNK
     Dates: start: 2011, end: 2013
  4. ALPHAGAN P [Suspect]
     Active Substance: BRIMONIDINE TARTRATE
     Indication: GLAUCOMA
     Dosage: UNK, THREE TIMES A DAY
     Dates: end: 20131002
  5. DORZOLAMIDE [Suspect]
     Active Substance: DORZOLAMIDE
     Indication: GLAUCOMA
     Dosage: UNK, TWICE A DAY
     Dates: end: 20131002

REACTIONS (4)
  - Eye irritation [Recovering/Resolving]
  - Ocular hyperaemia [Recovering/Resolving]
  - Hypersensitivity [Recovering/Resolving]
  - Eye pain [Recovering/Resolving]

NARRATIVE: CASE EVENT DATE: 201309
